FAERS Safety Report 4830940-0 (Version None)
Quarter: 2005Q4

REPORT INFORMATION
  Report Type: 
  Country: None (occurrence: None)
  Receive Date: 20051114
  Receipt Date: 20051102
  Transmission Date: 20060501
  Serious: Yes (Other)
  Sender: FDA-Public Use
  Company Number: 2005151408

PATIENT
  Age: 14 Year
  Sex: Female
  Weight: 28.2 kg

DRUGS (3)
  1. SOMATROPIN (SOMATROPIN) [Suspect]
     Indication: HYPOPITUITARISM
  2. PREDNISONE [Concomitant]
  3. MIZORIBING (MIZORIBINE) [Concomitant]

REACTIONS (2)
  - CONDITION AGGRAVATED [None]
  - LUPUS NEPHRITIS [None]
